FAERS Safety Report 5233903-9 (Version None)
Quarter: 2007Q1

REPORT INFORMATION
  Report Type: 
  Country: None (occurrence: None)
  Receive Date: 20070208
  Receipt Date: 20070124
  Transmission Date: 20070707
  Serious: Yes (Death, Hospitalization)
  Sender: FDA-Public Use
  Company Number: NSADSS2002004792

PATIENT
  Sex: Male
  Weight: 5.72 kg

DRUGS (3)
  1. PROPULSID [Suspect]
     Route: 048
     Dates: start: 19991128
  2. PROPULSID [Suspect]
     Indication: GASTROOESOPHAGEAL REFLUX DISEASE
     Route: 048
     Dates: start: 19991128
  3. ALBUTEROL [Concomitant]

REACTIONS (6)
  - ADVERSE EVENT [None]
  - BRONCHIOLITIS [None]
  - DEHYDRATION [None]
  - FEEDING DISORDER [None]
  - PYREXIA [None]
  - WOUND INFECTION [None]
